FAERS Safety Report 9288813 (Version 1)
Quarter: 2013Q2

REPORT INFORMATION
  Report Type: Spontaneous
  Country: US (occurrence: US)
  Receive Date: 20130514
  Receipt Date: 20130514
  Transmission Date: 20140414
  Serious: No
  Sender: FDA-Public Use
  Company Number: US-OPTIMER PHARMACEUTICALS, INC.-20110065

PATIENT
  Sex: 0

DRUGS (5)
  1. DIFICID [Suspect]
     Indication: CLOSTRIDIUM DIFFICILE COLITIS
     Dosage: 200 MG, BID
     Route: 048
     Dates: start: 20111128, end: 20111207
  2. DIFICID [Suspect]
     Indication: CLOSTRIDIAL INFECTION
     Dosage: 200 MG, BID
     Route: 048
     Dates: start: 20120202, end: 20120212
  3. VANCOMYCIN [Concomitant]
     Indication: CLOSTRIDIAL INFECTION
     Dosage: UNK
     Route: 065
     Dates: start: 20111025, end: 20111127
  4. VANCOMYCIN [Concomitant]
     Dosage: UNK
     Route: 065
     Dates: start: 20110619
  5. AMITRIPTYLINE [Concomitant]
     Indication: CYCLIC VOMITING SYNDROME
     Dosage: 25 MG, QHS
     Route: 048
     Dates: start: 2005

REACTIONS (9)
  - Clostridium difficile infection [Unknown]
  - Disease recurrence [Unknown]
  - Frequent bowel movements [Recovering/Resolving]
  - Abnormal faeces [Not Recovered/Not Resolved]
  - Abdominal pain [Not Recovered/Not Resolved]
  - Vomiting [Recovered/Resolved]
  - Influenza like illness [Recovered/Resolved]
  - Diarrhoea [Recovered/Resolved]
  - Flatulence [Not Recovered/Not Resolved]
